FAERS Safety Report 5030359-6 (Version None)
Quarter: 2006Q2

REPORT INFORMATION
  Report Type: 
  Country: None (occurrence: None)
  Receive Date: 20060614
  Receipt Date: 20060529
  Transmission Date: 20061013
  Serious: Yes (Hospitalization)
  Sender: FDA-Public Use
  Company Number: 8017261

PATIENT
  Age: 19 Year
  Sex: Male

DRUGS (6)
  1. KEPPRA [Suspect]
     Dosage: 1 G 2/D PO
     Route: 048
  2. LEPTICUR [Suspect]
     Dosage: 10 MG 2/D PO
     Route: 048
  3. URBANYL [Suspect]
     Dosage: 5 MG /D  PO
     Route: 048
  4. CLOPIXOL         /00876701/ [Suspect]
     Dosage: IM
     Route: 030
  5. EPITOMAX [Suspect]
     Dosage: 30 MG 2/D PO
     Route: 048
  6. TRILEPTAL [Suspect]
     Dosage: 900 MG 2/D PO
     Route: 048

REACTIONS (2)
  - GRAND MAL CONVULSION [None]
  - HYPONATRAEMIA [None]
